FAERS Safety Report 26151672 (Version 1)
Quarter: 2025Q4

REPORT INFORMATION
  Report Type: Spontaneous
  Country: EU (occurrence: EU)
  Receive Date: 20251212
  Receipt Date: 20251212
  Transmission Date: 20260117
  Serious: Yes (Life-Threatening, Hospitalization)
  Sender: TEVA
  Company Number: None

PATIENT
  Age: 19 Year
  Sex: Female
  Weight: 62 kg

DRUGS (3)
  1. ZOPICLONE [Suspect]
     Active Substance: ZOPICLONE
     Indication: Product used for unknown indication
     Dosage: TIME INTERVAL: 1 TOTAL
     Route: 048
     Dates: start: 20251114, end: 20251114
  2. CANNABIS SATIVA SUBSP. INDICA TOP [Suspect]
     Active Substance: CANNABIS SATIVA SUBSP. INDICA TOP
     Indication: Product used for unknown indication
     Dosage: 18 JOINTS, RESPIRATORY (INHALATION)
     Route: 065
     Dates: start: 20251113, end: 20251114
  3. QUETIAPINE [Suspect]
     Active Substance: QUETIAPINE
     Indication: Product used for unknown indication
     Dosage: TIME INTERVAL: 1 TOTAL
     Route: 048
     Dates: start: 20251114, end: 20251114

REACTIONS (3)
  - Coma [Recovered/Resolved]
  - Drug abuse [Recovered/Resolved]
  - Rhabdomyolysis [Recovered/Resolved]

NARRATIVE: CASE EVENT DATE: 20251114
